FAERS Safety Report 23692335 (Version 1)
Quarter: 2024Q2

REPORT INFORMATION
  Report Type: Report from Study
  Country: US (occurrence: US)
  Receive Date: 20240401
  Receipt Date: 20240401
  Transmission Date: 20240715
  Serious: Yes (Hospitalization)
  Sender: FDA-Public Use
  Company Number: US-TAKEDA-2024TUS028878

PATIENT
  Sex: Male

DRUGS (1)
  1. IXAZOMIB [Suspect]
     Active Substance: IXAZOMIB
     Indication: Chronic lymphocytic leukaemia
     Dosage: 4 MILLIGRAM
     Route: 048

REACTIONS (2)
  - Dyspnoea [Unknown]
  - Off label use [Unknown]
